FAERS Safety Report 8095922-7 (Version None)
Quarter: 2012Q1

REPORT INFORMATION
  Report Type: 
  Country: None (occurrence: None)
  Receive Date: 20120129
  Receipt Date: 20111222
  Transmission Date: 20120608
  Serious: No
  Sender: FDA-Public Use
  Company Number: US-ABBOTT-11P-163-0886675-00

PATIENT
  Age: 85 Year
  Sex: Female

DRUGS (17)
  1. ASCORBIC ACID [Concomitant]
     Indication: VITAMIN SUPPLEMENTATION
  2. IMURAN [Concomitant]
     Indication: COLITIS
  3. TOPROL-XL [Concomitant]
     Indication: HYPERTENSION
  4. VIALDI [Concomitant]
     Indication: COLITIS
  5. VITAMIN TAB [Concomitant]
     Indication: VITAMIN SUPPLEMENTATION
     Dosage: DAILY
  6. CANASA [Concomitant]
     Indication: GASTROINTESTINAL DISORDER
     Dosage: DAILY
  7. FOSAMAX [Concomitant]
     Indication: BONE DISORDER
     Dosage: WEEKLY
  8. IRON [Concomitant]
     Indication: MINERAL SUPPLEMENTATION
     Dosage: DAILY
  9. HUMIRA [Suspect]
     Indication: COLITIS ULCERATIVE
     Dates: start: 20110902
  10. SYNTHROID [Concomitant]
     Indication: HYPOTHYROIDISM
  11. LIPITOR [Concomitant]
     Indication: BLOOD CHOLESTEROL INCREASED
  12. PREDNISONE TAB [Concomitant]
     Indication: PRODUCT USED FOR UNKNOWN INDICATION
     Route: 048
  13. LISINOPRIL [Concomitant]
     Indication: HYPERTENSION
     Dosage: ONCE DAILY AT BEDTIME
  14. PROTONIX [Concomitant]
     Indication: GASTROOESOPHAGEAL REFLUX DISEASE
  15. POTASSIUM [Concomitant]
     Indication: MINERAL SUPPLEMENTATION
     Dosage: TWICE DAILY, AT LUNCH AND DINNER
  16. BIACTIVE [Concomitant]
     Indication: BONE DENSITY ABNORMAL
     Dosage: 1000 MG DAILY
  17. PREDNISONE TAB [Concomitant]

REACTIONS (2)
  - HAEMATOCHEZIA [None]
  - WEIGHT DECREASED [None]
